FAERS Safety Report 7663686-4 (Version None)
Quarter: 2011Q3

REPORT INFORMATION
  Report Type: 
  Country: None (occurrence: None)
  Receive Date: 20110805
  Receipt Date: 20100914
  Transmission Date: 20111222
  Serious: No
  Sender: FDA-Public Use
  Company Number: US-ABBOTT-10P-163-0671569-00

PATIENT
  Sex: Male
  Weight: 77.18 kg

DRUGS (5)
  1. ASPIRIN [Concomitant]
     Indication: PRODUCT USED FOR UNKNOWN INDICATION
  2. NIASPAN [Suspect]
     Indication: BLOOD CHOLESTEROL INCREASED
     Dates: start: 20100907
  3. TEKTURNA [Concomitant]
     Indication: HYPERTENSION
  4. NEXIUM [Concomitant]
     Indication: PRODUCT USED FOR UNKNOWN INDICATION
  5. UNKNOWN EYE DROPS [Concomitant]
     Indication: DRY EYE
     Route: 047

REACTIONS (1)
  - FAECES DISCOLOURED [None]
